FAERS Safety Report 6766462-X (Version None)
Quarter: 2010Q2

REPORT INFORMATION
  Report Type: 
  Country: None (occurrence: None)
  Receive Date: 20100611
  Receipt Date: 20100530
  Transmission Date: 20101027
  Serious: Yes (Other)
  Sender: FDA-Public Use
  Company Number: US-PFIZER INC-2010068711

PATIENT

DRUGS (1)
  1. CHANTIX [Suspect]

REACTIONS (3)
  - HOSTILITY [None]
  - PERSONALITY CHANGE [None]
  - SLEEP DISORDER [None]
